FAERS Safety Report 4422810-7 (Version None)
Quarter: 2004Q3

REPORT INFORMATION
  Report Type: 
  Country: None (occurrence: None)
  Receive Date: 20040811
  Receipt Date: 20040726
  Transmission Date: 20050211
  Serious: Yes (Hospitalization)
  Sender: FDA-Public Use
  Company Number: 200415686US

PATIENT
  Age: 63 Year
  Sex: Female
  Weight: 59.91 kg

DRUGS (10)
  1. TAXOTERE [Suspect]
     Indication: BREAST CANCER
     Route: 042
     Dates: start: 20040629, end: 20040629
  2. CARBOPLATIN [Suspect]
     Indication: BREAST CANCER
     Dosage: DOSE: AUC 6
     Route: 042
     Dates: start: 20040629, end: 20040629
  3. HERCEPTIN [Suspect]
     Indication: BREAST CANCER
     Dosage: DOSE: UNK
  4. AVANDAMET [Concomitant]
     Indication: DIABETES MELLITUS
  5. ACIPHEX [Concomitant]
     Dosage: DOSE: UNK
  6. COZAAR [Concomitant]
     Dosage: DOSE: UNK
  7. GLIPIZIDE [Concomitant]
     Indication: DIABETES MELLITUS
  8. SIMVASTATIN [Concomitant]
     Dosage: DOSE: UNK
  9. LEVAQUIN [Concomitant]
     Indication: URINARY TRACT INFECTION
     Dosage: DOSE: UNK
     Dates: start: 20040702
  10. PYRIDIUM [Concomitant]
     Indication: URINARY TRACT INFECTION
     Dosage: DOSE: UNK
     Dates: start: 20040702

REACTIONS (16)
  - ABDOMINAL PAIN [None]
  - ASTHENIA [None]
  - BLOOD CHLORIDE DECREASED [None]
  - BLOOD CREATININE INCREASED [None]
  - BLOOD GLUCOSE INCREASED [None]
  - BLOOD SODIUM INCREASED [None]
  - BLOOD UREA INCREASED [None]
  - DEHYDRATION [None]
  - HYPOAESTHESIA [None]
  - HYPOKALAEMIA [None]
  - MARKEDLY REDUCED DIETARY INTAKE [None]
  - MUSCLE CRAMP [None]
  - NAUSEA [None]
  - PARAESTHESIA [None]
  - URINARY TRACT INFECTION [None]
  - VOMITING [None]
